FAERS Safety Report 23233733 (Version 1)
Quarter: 2023Q4

REPORT INFORMATION
  Report Type: Spontaneous
  Country: AR (occurrence: None)
  Receive Date: 20231128
  Receipt Date: 20231128
  Transmission Date: 20240110
  Serious: Yes (Other)
  Sender: FDA-Public Use
  Company Number: 2023A265299

PATIENT
  Age: 90 Year
  Sex: Female

DRUGS (2)
  1. FULVESTRANT [Suspect]
     Active Substance: FULVESTRANT
     Dosage: UNKNOWN
     Route: 030
  2. IBRANCE [Suspect]
     Active Substance: PALBOCICLIB
     Indication: Breast cancer metastatic
     Dosage: CYCLIC DAILY 3X1 SCHEME75.0MG UNKNOWN
     Route: 048
     Dates: start: 20180924

REACTIONS (4)
  - Decreased immune responsiveness [Unknown]
  - Colitis [Unknown]
  - Skin ulcer [Unknown]
  - Gait inability [Unknown]

NARRATIVE: CASE EVENT DATE: 20180924
